FAERS Safety Report 8292033 (Version 4)
Quarter: 2014Q1

REPORT INFORMATION
  Report Type: Spontaneous
  Country: US (occurrence: US)
  Receive Date: 20111215
  Receipt Date: 20140321
  Transmission Date: 20141002
  Serious: Yes (Hospitalization)
  Sender: FDA-Public Use
  Company Number: US-BAYER-2011-117765

PATIENT
  Age: 31 Year
  Sex: Female
  Weight: 68.48 kg

DRUGS (10)
  1. BEYAZ [Suspect]
     Indication: CONTRACEPTION
     Dosage: UNK
     Route: 048
     Dates: start: 20110329, end: 20111004
  2. WELLBUTRIN [Concomitant]
  3. ZYRTEC-D [Concomitant]
  4. IMITREX [Concomitant]
  5. ZONEGRAN [Concomitant]
  6. ALEVE [Concomitant]
  7. ADVIL [Concomitant]
  8. EXCEDRIN [ACETYLSALICYLIC ACID,CAFFEINE,PARACETAMOL,SALICYLAMIDE] [Concomitant]
  9. BACLOFEN [Concomitant]
  10. METOCLOPRAMIDE [Concomitant]

REACTIONS (17)
  - Cerebral thrombosis [None]
  - Cerebrovascular accident [None]
  - Superior sagittal sinus thrombosis [None]
  - Cerebral haemorrhage [None]
  - Headache [None]
  - Visual impairment [None]
  - Injury [None]
  - Pain [None]
  - Emotional distress [None]
  - Anxiety [None]
  - Anhedonia [None]
  - Memory impairment [None]
  - Depression [None]
  - Amnesia [None]
  - Speech disorder [None]
  - Disinhibition [None]
  - Emotional disorder [None]
